FAERS Safety Report 26188391 (Version 1)
Quarter: 2025Q4

REPORT INFORMATION
  Report Type: Spontaneous
  Country: US (occurrence: None)
  Receive Date: 20251222
  Receipt Date: 20251222
  Transmission Date: 20260119
  Serious: No
  Sender: Harrow Health
  Company Number: US-HARROW-HAR-2025-US-01013

PATIENT
  Sex: Female

DRUGS (3)
  1. VEVYE [Suspect]
     Active Substance: CYCLOSPORINE
     Route: 047
     Dates: start: 20250911, end: 20250911
  2. Bio-True [Concomitant]
  3. Sustain eye drops [Concomitant]

REACTIONS (1)
  - Eye pain [Unknown]
